FAERS Safety Report 16438803 (Version 1)
Quarter: 2019Q2

REPORT INFORMATION
  Report Type: Spontaneous
  Country: JP (occurrence: JP)
  Receive Date: 20190617
  Receipt Date: 20190617
  Transmission Date: 20190711
  Serious: Yes (Life-Threatening, Hospitalization, Other)
  Sender: FDA-Public Use
  Company Number: JP-BAYER-2018-241746

PATIENT
  Age: 23 Year
  Sex: Female
  Weight: 58 kg

DRUGS (7)
  1. YAZ [Suspect]
     Active Substance: DROSPIRENONE\ETHINYL ESTRADIOL
     Indication: DYSMENORRHOEA
     Dosage: UNK UNK, QD
     Route: 048
     Dates: start: 20180722, end: 20181201
  2. LOXOPROFEN NA [Concomitant]
     Active Substance: LOXOPROFEN SODIUM
     Indication: PAIN
     Dosage: 60 MG, QD
     Route: 048
  3. REBAMIPIDE [Concomitant]
     Active Substance: REBAMIPIDE
     Indication: PAIN
     Dosage: 100 MG, QD
  4. LOXOPROFEN NA [Concomitant]
     Active Substance: LOXOPROFEN SODIUM
     Indication: PAIN
     Dosage: 100 MG, QD
     Route: 061
  5. LEXOTAN [Concomitant]
     Active Substance: BROMAZEPAM
     Indication: ANXIETY
     Dosage: 1 MG, QD
     Route: 048
  6. ISOBIDE [ISOSORBIDE DINITRATE] [Concomitant]
     Dosage: DAILY 90ML
  7. DICLOFENAC SODIUM. [Concomitant]
     Active Substance: DICLOFENAC SODIUM
     Indication: PAIN
     Dosage: UNK , PRN
     Route: 061

REACTIONS (7)
  - Dyspnoea [Recovering/Resolving]
  - Contraindicated product administered [None]
  - Pulmonary embolism [Recovering/Resolving]
  - Pain [None]
  - Pelvic venous thrombosis [Recovered/Resolved]
  - Pneumonia [None]
  - Haemoptysis [None]

NARRATIVE: CASE EVENT DATE: 20181128
